FAERS Safety Report 5610515-6 (Version None)
Quarter: 2008Q1

REPORT INFORMATION
  Report Type: 
  Country: None (occurrence: None)
  Receive Date: 20080201
  Receipt Date: 20080123
  Transmission Date: 20080703
  Serious: Yes (Hospitalization)
  Sender: FDA-Public Use
  Company Number: FR-BRISTOL-MYERS SQUIBB COMPANY-14059547

PATIENT
  Age: 58 Year
  Sex: Female

DRUGS (5)
  1. ENDOXAN [Suspect]
     Indication: WEGENER'S GRANULOMATOSIS
     Dosage: OCT-2003 TO JAN 2004 AND THEN JAN-2004 TO JUL-2004.
     Route: 042
     Dates: start: 20070813, end: 20071211
  2. UROMITEXAN [Suspect]
     Indication: WEGENER'S GRANULOMATOSIS
     Route: 042
     Dates: start: 20070813, end: 20071211
  3. IMMUNE GLOBULIN INTRAVENOUS (HUMAN) [Concomitant]
  4. ZOPHREN [Concomitant]
     Route: 042
     Dates: end: 20071211
  5. IMUREL [Concomitant]
     Dates: start: 20040701, end: 20070101

REACTIONS (2)
  - PARAESTHESIA [None]
  - PRURITUS [None]
